FAERS Safety Report 9871694 (Version 1)
Quarter: 2014Q1

REPORT INFORMATION
  Report Type: Spontaneous
  Country: US (occurrence: US)
  Receive Date: 20140205
  Receipt Date: 20140205
  Transmission Date: 20141002
  Serious: No
  Sender: FDA-Public Use
  Company Number: US-BAXTER-2014BAX005819

PATIENT
  Age: 13 Year
  Sex: 0
  Weight: 69.4 kg

DRUGS (1)
  1. 0.9% SODIUM CHLORIDE INJECTION [Suspect]
     Indication: PRODUCT USED FOR UNKNOWN INDICATION
     Route: 065

REACTIONS (5)
  - Chest discomfort [Unknown]
  - Pain [Unknown]
  - Malaise [Unknown]
  - Dyspnoea [Unknown]
  - Anxiety [Unknown]
